FAERS Safety Report 25170392 (Version 1)
Quarter: 2025Q2

REPORT INFORMATION
  Report Type: Spontaneous
  Country: US (occurrence: None)
  Receive Date: 20250408
  Receipt Date: 20250408
  Transmission Date: 20250716
  Serious: Yes (Other)
  Sender: ENCUBE ETHICALS
  Company Number: US-Encube-001719

PATIENT
  Age: 38 Year
  Sex: Male

DRUGS (1)
  1. MESALAMINE [Suspect]
     Active Substance: MESALAMINE
     Indication: Colitis

REACTIONS (1)
  - Pemphigoid [Recovering/Resolving]
